FAERS Safety Report 6466404-0 (Version None)
Quarter: 2009Q4

REPORT INFORMATION
  Report Type: 
  Country: None (occurrence: None)
  Receive Date: 20091202
  Receipt Date: 20081109
  Transmission Date: 20100525
  Serious: No
  Sender: FDA-Public Use
  Company Number: US-AMGEN-KDL318139

PATIENT
  Sex: Male

DRUGS (1)
  1. ENBREL [Suspect]
     Indication: RHEUMATOID ARTHRITIS
     Route: 058
     Dates: start: 20071001

REACTIONS (5)
  - BURNING SENSATION [None]
  - FEELING COLD [None]
  - INJECTION SITE PAIN [None]
  - MYALGIA [None]
  - PAIN IN EXTREMITY [None]
